FAERS Safety Report 8573143-9 (Version None)
Quarter: 2012Q3

REPORT INFORMATION
  Report Type: 
  Country: None (occurrence: None)
  Receive Date: 20120806
  Receipt Date: 20120726
  Transmission Date: 20120928
  Serious: Yes (Other)
  Sender: FDA-Public Use
  Company Number: US-PERRIGO-12US003824

PATIENT
  Sex: Female
  Weight: 58.957 kg

DRUGS (4)
  1. ESTROGEN [Concomitant]
     Indication: HORMONE REPLACEMENT THERAPY
     Dosage: UNK
     Route: 065
     Dates: start: 20100101
  2. PROGESTERONE [Concomitant]
     Indication: HORMONE REPLACEMENT THERAPY
     Dosage: UNK
     Route: 065
     Dates: start: 20100101
  3. IMIQUIMOD [Suspect]
     Dosage: THIN LAYER, ONCE
     Route: 061
     Dates: start: 20120329, end: 20120329
  4. IMIQUIMOD [Suspect]
     Indication: ANOGENITAL WARTS
     Dosage: THIN LAYER, ONCE
     Route: 061
     Dates: start: 20120326, end: 20120326

REACTIONS (6)
  - APPLICATION SITE ULCER [None]
  - APPLICATION SITE PAIN [None]
  - APPLICATION SITE PRURITUS [None]
  - DYSURIA [None]
  - APPLICATION SITE INFLAMMATION [None]
  - INFECTED SKIN ULCER [None]
